FAERS Safety Report 17800729 (Version 1)
Quarter: 2020Q2

REPORT INFORMATION
  Report Type: Spontaneous
  Country: US (occurrence: US)
  Receive Date: 20200519
  Receipt Date: 20200519
  Transmission Date: 20200714
  Serious: Yes (Hospitalization)
  Sender: FDA-Public Use
  Company Number: US-ROCHE-2602236

PATIENT
  Age: 55 Year
  Sex: Female

DRUGS (1)
  1. ALECENSA [Suspect]
     Active Substance: ALECTINIB HYDROCHLORIDE
     Indication: BRONCHIAL CARCINOMA
     Route: 048
     Dates: start: 20190703

REACTIONS (7)
  - Intentional product use issue [Unknown]
  - Swelling [Unknown]
  - Weight increased [Unknown]
  - Off label use [Unknown]
  - Fatigue [Unknown]
  - Constipation [Unknown]
  - Fluid retention [Unknown]

NARRATIVE: CASE EVENT DATE: 20200511
